FAERS Safety Report 14726601 (Version 2)
Quarter: 2018Q4

REPORT INFORMATION
  Report Type: Spontaneous
  Country: GB (occurrence: GB)
  Receive Date: 20180406
  Receipt Date: 20181103
  Transmission Date: 20190204
  Serious: Yes (Death, Other)
  Sender: FDA-Public Use
  Company Number: GB-ACCORD-065313

PATIENT
  Age: 69 Year
  Sex: Male

DRUGS (1)
  1. METHOTREXATE. [Suspect]
     Active Substance: METHOTREXATE
     Indication: PSORIASIS
     Route: 048
     Dates: start: 200411, end: 201504

REACTIONS (3)
  - Nodular regenerative hyperplasia [Fatal]
  - Hepatic failure [Fatal]
  - Portal hypertension [Fatal]

NARRATIVE: CASE EVENT DATE: 201504
